FAERS Safety Report 7386184-4 (Version None)
Quarter: 2011Q1

REPORT INFORMATION
  Report Type: 
  Country: None (occurrence: None)
  Receive Date: 20110331
  Receipt Date: 20110329
  Transmission Date: 20110831
  Serious: No
  Sender: FDA-Public Use
  Company Number: US-PFIZER INC-2010119824

PATIENT
  Sex: Female

DRUGS (7)
  1. CELLCEPT [Interacting]
     Indication: IMMUNOSUPPRESSANT DRUG THERAPY
     Dosage: UNK
  2. AMBIEN [Concomitant]
     Dosage: UNK
  3. RAPAMUNE [Interacting]
     Indication: IMMUNOSUPPRESSANT DRUG THERAPY
     Dosage: UNK
  4. DEXILANT [Concomitant]
     Indication: GASTRIC DISORDER
     Dosage: UNK
  5. ZOLOFT [Suspect]
     Indication: ANXIETY
     Dosage: 25 MG, 1X/DAY
     Route: 048
     Dates: start: 20100701
  6. ZOLOFT [Interacting]
     Indication: DEPRESSION
  7. LOTREL [Concomitant]
     Indication: HYPERTENSION
     Dosage: UNK

REACTIONS (3)
  - DRUG INTERACTION [None]
  - SOMNOLENCE [None]
  - FATIGUE [None]
